FAERS Safety Report 9244880 (Version 3)
Quarter: 2013Q2

REPORT INFORMATION
  Report Type: Spontaneous
  Country: US (occurrence: US)
  Receive Date: 20130422
  Receipt Date: 20130514
  Transmission Date: 20140414
  Serious: Yes (Other)
  Sender: FDA-Public Use
  Company Number: US-JNJFOC-20130408911

PATIENT
  Age: 89 Year
  Sex: Male
  Weight: 94.35 kg

DRUGS (21)
  1. XARELTO [Suspect]
     Indication: DEEP VEIN THROMBOSIS
     Route: 048
     Dates: start: 20130312
  2. TYLENOL [Concomitant]
     Indication: PYREXIA
     Dosage: AS NEEDED
     Route: 048
  3. TYLENOL [Concomitant]
     Indication: PAIN
     Dosage: AS NEEDED
     Route: 048
  4. PROVENTIL [Concomitant]
     Dosage: 2.5 MG/3 ML (0.083%) NEBULIZATION EVERY 6 HOURS AS NEEDED
     Route: 065
  5. ZYLOPRIM [Concomitant]
     Route: 048
  6. ASPIRIN [Concomitant]
     Route: 048
  7. CARDIZEM CD [Concomitant]
     Indication: ATRIAL FIBRILLATION
  8. PROSCAR [Concomitant]
     Route: 048
  9. FLOVENT HFA [Concomitant]
     Dosage: 2 INHALATIONS INTO THE LUNGS 2 TIMES DAILY
     Route: 055
  10. LASIX [Concomitant]
     Route: 048
  11. NORCO [Concomitant]
     Dosage: 5-325 MG
     Route: 048
  12. ATROVENT [Concomitant]
     Dosage: 0.02 % NEBULIZER SOLUTION
     Route: 055
  13. IMDUR [Concomitant]
     Indication: CARDIAC DISORDER
     Dosage: 1/2 TABLET EVERY MORNING
     Route: 048
  14. MAGNESIUM HYDROXIDE [Concomitant]
     Dosage: AS NEEDED
     Route: 048
  15. TOPROL XL [Concomitant]
     Indication: BLOOD PRESSURE
     Dosage: 1/2 TABLET TWICE DAILY
     Route: 048
  16. TOPROL XL [Concomitant]
     Indication: CARDIAC DISORDER
     Dosage: 1/2 TABLET TWICE DAILY
     Route: 048
  17. NITROSTAT [Concomitant]
     Indication: CHEST PAIN
     Dosage: AS NEEDED. MAY TAKE UP TO 3 DOSES.
     Route: 060
  18. PRILOSEC [Concomitant]
     Route: 048
  19. KLOR CON [Concomitant]
     Route: 048
  20. ZOCOR [Concomitant]
     Indication: BLOOD CHOLESTEROL
     Dosage: 1/2 TABLET EVERY EVENING.
     Route: 048
  21. FLEET LAXATIVE [Concomitant]
     Dosage: 10 MG/30 ML ONCE
     Route: 054

REACTIONS (4)
  - Syncope [Recovered/Resolved]
  - Dizziness [Recovered/Resolved]
  - Fall [Unknown]
  - Neck pain [Unknown]
